FAERS Safety Report 4467478-9 (Version None)
Quarter: 2004Q4

REPORT INFORMATION
  Report Type: 
  Country: None (occurrence: None)
  Receive Date: 20041006
  Receipt Date: 20041004
  Transmission Date: 20050328
  Serious: Yes (Other)
  Sender: FDA-Public Use
  Company Number: DE-MERCK-0410DEU00064

PATIENT
  Sex: Male

DRUGS (2)
  1. [THERAPY UNSPECIFIED] [Concomitant]
     Indication: SHOULDER OPERATION
     Route: 065
     Dates: start: 20040901
  2. VIOXX [Suspect]
     Route: 048
     Dates: start: 20020101, end: 20040901

REACTIONS (3)
  - CEREBROVASCULAR ACCIDENT [None]
  - MUSCULOSKELETAL DISCOMFORT [None]
  - SHOULDER OPERATION [None]
